FAERS Safety Report 11302177 (Version 1)
Quarter: 2015Q3

REPORT INFORMATION
  Report Type: Spontaneous
  Country: US (occurrence: US)
  Receive Date: 20150722
  Receipt Date: 20150722
  Transmission Date: 20151125
  Serious: No
  Sender: FDA-Public Use
  Company Number: US-ELI_LILLY_AND_COMPANY-US200806004695

PATIENT
  Age: 75 Year
  Sex: Female

DRUGS (1)
  1. EVISTA [Suspect]
     Active Substance: RALOXIFENE HYDROCHLORIDE
     Indication: PROPHYLAXIS
     Dosage: 60 MG, UNK
     Dates: start: 2000

REACTIONS (5)
  - Endometrial disorder [Unknown]
  - Sexual activity increased [Unknown]
  - Vulvovaginal dryness [Unknown]
  - Dysuria [Unknown]
  - Dyspareunia [Unknown]

NARRATIVE: CASE EVENT DATE: 2007
